FAERS Safety Report 8844541 (Version 2)
Quarter: 2013Q1

REPORT INFORMATION
  Report Type: Spontaneous
  Country: US (occurrence: US)
  Receive Date: 20121017
  Receipt Date: 20130116
  Transmission Date: 20140127
  Serious: No
  Sender: FDA-Public Use
  Company Number: US-BAUSCH-BL-2012-000820

PATIENT
  Age: 73 Year
  Sex: Male

DRUGS (10)
  1. LATANOPROST OPHTHALMIC SOLUTION 0.005% [Suspect]
     Indication: GLAUCOMA
     Dosage: 1 DROP IN EACH EYE; EVERY NIGHT AT BEDTIME
     Route: 047
     Dates: start: 2011, end: 20120905
  2. VALSARTAN [Concomitant]
  3. ESOMEPRAZOLE MAGNESIUM [Concomitant]
  4. FINASTERIDE [Concomitant]
  5. DOXAZOSIN [Concomitant]
  6. PREDNISONE [Concomitant]
  7. CALCIUM [Concomitant]
  8. VITAMINS NOS [Concomitant]
  9. GLUCOSAMINE [Concomitant]
  10. COLESTYRAMINE [Concomitant]

REACTIONS (1)
  - Intraocular pressure increased [Not Recovered/Not Resolved]
